FAERS Safety Report 15042855 (Version 1)
Quarter: 2018Q2

REPORT INFORMATION
  Report Type: Spontaneous
  Country: US (occurrence: US)
  Receive Date: 20180531
  Receipt Date: 20180531
  Transmission Date: 20180711
  Serious: Yes (Other)
  Sender: FDA-Public Use
  Company Number: None

PATIENT
  Age: 62 Year
  Sex: Female
  Weight: 80.29 kg

DRUGS (8)
  1. VITAMIN B COMPLEX [Concomitant]
     Active Substance: CYANOCOBALAMIN\DEXPANTHENOL\NIACINAMIDE\PYRIDOXINE HYDROCHLORIDE\RIBOFLAVIN 5^-PHOSPHATE SODIUM\THIAMINE HYDROCHLORIDE\VITAMIN B COMPLEX
  2. CHORELLA/SPIRULINA [Concomitant]
  3. SENIOR 50+ VIT [Concomitant]
  4. BLK CURRANT [Concomitant]
  5. D3/K-2 [Concomitant]
  6. FISH OIL [Concomitant]
     Active Substance: FISH OIL
  7. AMLODIPINE [Suspect]
     Active Substance: AMLODIPINE BESYLATE
     Indication: HYPERTENSION
     Dosage: ?          QUANTITY:1 DF DOSAGE FORM;?
     Route: 048
     Dates: start: 20150715, end: 20180502
  8. COQ10 [Concomitant]
     Active Substance: UBIDECARENONE

REACTIONS (3)
  - Ocular hyperaemia [None]
  - Eye pain [None]
  - Macular degeneration [None]

NARRATIVE: CASE EVENT DATE: 20180416
